FAERS Safety Report 13535605 (Version 2)
Quarter: 2017Q2

REPORT INFORMATION
  Report Type: Report from Study
  Country: US (occurrence: US)
  Receive Date: 20170511
  Receipt Date: 20170621
  Transmission Date: 20170830
  Serious: Yes (Death, Hospitalization, Other)
  Sender: FDA-Public Use
  Company Number: US-GILEAD-2017-0272297

PATIENT
  Age: 66 Year
  Sex: Female

DRUGS (2)
  1. AMBRISENTAN [Suspect]
     Active Substance: AMBRISENTAN
     Indication: PRODUCT USED FOR UNKNOWN INDICATION
     Dosage: 5 MG, QD
     Route: 065
     Dates: start: 20090513
  2. ELIQUIS [Concomitant]
     Active Substance: APIXABAN

REACTIONS (5)
  - Abdominal pain upper [Unknown]
  - Vomiting [Unknown]
  - Pancreatic carcinoma [Fatal]
  - Atrial fibrillation [Recovered/Resolved]
  - Diarrhoea [Unknown]
